FAERS Safety Report 8775682 (Version 9)
Quarter: 2014Q1

REPORT INFORMATION
  Report Type: Spontaneous
  Country: US (occurrence: US)
  Receive Date: 20120910
  Receipt Date: 20140221
  Transmission Date: 20141002
  Serious: Yes (Hospitalization, Other)
  Sender: FDA-Public Use
  Company Number: US-PFIZER INC-2012221498

PATIENT
  Age: 60 Year
  Sex: Female
  Weight: 91 kg

DRUGS (2)
  1. LYRICA [Suspect]
     Indication: NEUROPATHY PERIPHERAL
     Dosage: UNK
     Route: 048
     Dates: start: 2005
  2. LYRICA [Suspect]
     Indication: PAIN IN EXTREMITY
     Dosage: 200 MG, 3X/DAY
     Route: 048

REACTIONS (4)
  - Lower limb fracture [Recovering/Resolving]
  - Hip fracture [Unknown]
  - Muscle spasms [Unknown]
  - Pain [Unknown]
